FAERS Safety Report 4654824-6 (Version None)
Quarter: 2005Q2

REPORT INFORMATION
  Report Type: 
  Country: None (occurrence: None)
  Receive Date: 20050506
  Receipt Date: 20050331
  Transmission Date: 20051028
  Serious: Yes (Hospitalization, Other)
  Sender: FDA-Public Use
  Company Number: DE-BRISTOL-MYERS SQUIBB COMPANY-12922852

PATIENT
  Age: 56 Year
  Sex: Female

DRUGS (3)
  1. CETUXIMAB [Suspect]
     Indication: LUNG CARCINOMA CELL TYPE UNSPECIFIED STAGE 0
     Dosage: ON 30-MAR-2005 (MOST RECENT INFUSION), 2ND INFUSION THUS FAR.
     Route: 041
     Dates: start: 20050317, end: 20050330
  2. CISPLATIN [Suspect]
     Indication: LUNG CARCINOMA CELL TYPE UNSPECIFIED STAGE 0
     Dosage: FIRST INFUSION
     Dates: start: 20050317, end: 20050317
  3. VINORELBINE TARTRATE [Suspect]
     Indication: LUNG CARCINOMA CELL TYPE UNSPECIFIED STAGE 0
     Dosage: ON 30-MAR-2005 (MOST RECENT INFUSION), 2ND INFUSION THUS FAR. DISCONTINUED
     Dates: start: 20050317

REACTIONS (2)
  - SERUM SICKNESS [None]
  - SKIN EXFOLIATION [None]
